FAERS Safety Report 8357220-3 (Version None)
Quarter: 2012Q2

REPORT INFORMATION
  Report Type: 
  Country: None (occurrence: None)
  Receive Date: 20120514
  Receipt Date: 20120501
  Transmission Date: 20120825
  Serious: Yes (Hospitalization)
  Sender: FDA-Public Use
  Company Number: JP-ELI_LILLY_AND_COMPANY-JP201204003634

PATIENT
  Age: 66 Year
  Sex: Female

DRUGS (3)
  1. DEPAS [Concomitant]
     Indication: ADJUSTMENT DISORDER
     Dosage: UNK
     Route: 048
  2. SENIRAN [Concomitant]
     Indication: ADJUSTMENT DISORDER
     Dosage: UNK
     Route: 048
  3. ZYPREXA [Suspect]
     Indication: AGITATION
     Dosage: 10 MG, QD
     Route: 048

REACTIONS (6)
  - GENITAL NEOPLASM MALIGNANT FEMALE [None]
  - HALLUCINATION [None]
  - SOMNOLENCE [None]
  - RESTLESSNESS [None]
  - ADJUSTMENT DISORDER [None]
  - OFF LABEL USE [None]
